FAERS Safety Report 10190301 (Version 3)
Quarter: 2014Q2

REPORT INFORMATION
  Report Type: Spontaneous
  Country: US (occurrence: US)
  Receive Date: 20140522
  Receipt Date: 20140626
  Transmission Date: 20141212
  Serious: Yes (Hospitalization)
  Sender: FDA-Public Use
  Company Number: US-BIOMARINAP-US-2014-103254

PATIENT
  Age: 3 Year
  Sex: Female
  Weight: 13.8 kg

DRUGS (1)
  1. VIMIZIM [Suspect]
     Indication: MUCOPOLYSACCHARIDOSIS IV
     Dosage: UNK UNK, QW
     Route: 041
     Dates: start: 20140318, end: 20140523

REACTIONS (1)
  - Bacteraemia [Recovered/Resolved]
